FAERS Safety Report 4537264-X (Version None)
Quarter: 2004Q4

REPORT INFORMATION
  Report Type: 
  Country: None (occurrence: None)
  Receive Date: 20041223
  Receipt Date: 20041220
  Transmission Date: 20050328
  Serious: Yes (Other)
  Sender: FDA-Public Use
  Company Number: PHEH2004US13498

PATIENT
  Age: 71 Year
  Sex: Female

DRUGS (5)
  1. ATENOLOL [Concomitant]
  2. TENEX [Concomitant]
  3. SPIRONOLACTONE [Concomitant]
  4. MULTIVITAMIN [Concomitant]
  5. DIOVAN [Suspect]
     Indication: HYPERTENSION
     Dosage: 320 MG, QD
     Route: 048
     Dates: start: 20000101

REACTIONS (1)
  - WHITE BLOOD CELL COUNT DECREASED [None]
